FAERS Safety Report 14023077 (Version 1)
Quarter: 2017Q3

REPORT INFORMATION
  Report Type: Spontaneous
  Country: US (occurrence: US)
  Receive Date: 20170928
  Receipt Date: 20170928
  Transmission Date: 20171128
  Serious: No
  Sender: FDA-Public Use
  Company Number: US-SA-2016SA197022

PATIENT
  Age: 68 Year
  Sex: Female

DRUGS (9)
  1. ZYRTEC [Concomitant]
     Active Substance: CETIRIZINE HYDROCHLORIDE
     Indication: HYPERSENSITIVITY
     Dosage: 10 MG
  2. AUBAGIO [Suspect]
     Active Substance: TERIFLUNOMIDE
     Route: 065
  3. BACLOFEN. [Concomitant]
     Active Substance: BACLOFEN
     Indication: MULTIPLE SCLEROSIS
     Dosage: 3/4*A DAY?10 MG
  4. METROGEL [Concomitant]
     Active Substance: METRONIDAZOLE
     Indication: ROSACEA
     Dosage: 75% 2*DAY
  5. CALTRATE [Concomitant]
     Active Substance: CALCIUM CARBONATE
     Indication: GASTRIC DISORDER
     Dosage: 600 MG
  6. BIOTIN [Concomitant]
     Active Substance: BIOTIN
     Indication: NAIL DISORDER
     Dosage: 3 MG?WITH ZINC
  7. RESTASIS [Concomitant]
     Active Substance: CYCLOSPORINE
     Indication: DRY EYE
     Dosage: 0.5?2*DAY
  8. FISH OIL [Concomitant]
     Active Substance: FISH OIL
     Indication: DRY EYE
     Dosage: 1880 MG
  9. CYMBALTA [Concomitant]
     Active Substance: DULOXETINE HYDROCHLORIDE
     Indication: MULTIPLE SCLEROSIS
     Dosage: 20 MG: STRENGTH

REACTIONS (1)
  - Hair texture abnormal [Unknown]
